FAERS Safety Report 24195427 (Version 1)
Quarter: 2024Q3

REPORT INFORMATION
  Report Type: Spontaneous
  Country: US (occurrence: None)
  Receive Date: 20240809
  Receipt Date: 20240809
  Transmission Date: 20241017
  Serious: Yes (Death)
  Sender: Public
  Company Number: None

PATIENT
  Age: 77 Year
  Sex: Female

DRUGS (11)
  1. HUMIRA [Suspect]
     Active Substance: ADALIMUMAB
     Indication: Rheumatoid arthritis
     Dosage: 40 MG EVERY 7 DAYS SUBCUTANEOUS
     Route: 058
     Dates: start: 20230203, end: 20240705
  2. AMITRIPTYLINE [Concomitant]
     Active Substance: AMITRIPTYLINE
  3. DALIRESP [Concomitant]
     Active Substance: ROFLUMILAST
  4. LASIX [Concomitant]
     Active Substance: FUROSEMIDE
  5. LIPITOR [Concomitant]
  6. LYRICA [Concomitant]
     Active Substance: PREGABALIN
  7. METH0TREXATE [Concomitant]
  8. MITICARE [Concomitant]
  9. NEURONTIN [Concomitant]
  10. NORCO [Concomitant]
  11. NORVASC [Concomitant]
     Active Substance: AMLODIPINE BESYLATE

REACTIONS (2)
  - Chronic obstructive pulmonary disease [None]
  - Cardiac failure [None]

NARRATIVE: CASE EVENT DATE: 20240801
